FAERS Safety Report 23936227 (Version 1)
Quarter: 2024Q2

REPORT INFORMATION
  Report Type: Spontaneous
  Country: US (occurrence: US)
  Receive Date: 20240604
  Receipt Date: 20240604
  Transmission Date: 20240715
  Serious: Yes (Hospitalization, Other)
  Sender: FDA-Public Use
  Company Number: US-BRISTOL-MYERS SQUIBB COMPANY-2024-087616

PATIENT
  Age: 89 Year
  Sex: Female
  Weight: 98.2 kg

DRUGS (1)
  1. LENALIDOMIDE [Suspect]
     Active Substance: LENALIDOMIDE
     Indication: Plasma cell myeloma
     Dosage: FREQUENCY: DAILY DAYS 1-14 EVERY 21 DAYS
     Route: 048
     Dates: start: 20240412

REACTIONS (3)
  - Pyrexia [Unknown]
  - Hemiplegia [Unknown]
  - Off label use [Unknown]

NARRATIVE: CASE EVENT DATE: 20240501
